FAERS Safety Report 17911647 (Version 1)
Quarter: 2020Q2

REPORT INFORMATION
  Report Type: Spontaneous
  Country: US (occurrence: US)
  Receive Date: 20200618
  Receipt Date: 20200618
  Transmission Date: 20200714
  Serious: No
  Sender: FDA-Public Use
  Company Number: US-PFIZER INC-2020101313

PATIENT
  Age: 38 Year
  Sex: Female

DRUGS (1)
  1. XELJANZ [Suspect]
     Active Substance: TOFACITINIB CITRATE
     Indication: PSORIATIC ARTHROPATHY
     Dosage: 10 MG, 1X/DAY (TWO 5 MG TABLETS ONCE DAILY )
     Route: 048
     Dates: start: 20200228, end: 2020

REACTIONS (4)
  - Product prescribing issue [Unknown]
  - Loss of personal independence in daily activities [Recovering/Resolving]
  - Weight bearing difficulty [Recovering/Resolving]
  - Pain [Recovering/Resolving]

NARRATIVE: CASE EVENT DATE: 2020
